FAERS Safety Report 8095640-5 (Version None)
Quarter: 2012Q1

REPORT INFORMATION
  Report Type: 
  Country: None (occurrence: None)
  Receive Date: 20120129
  Receipt Date: 20111215
  Transmission Date: 20120608
  Serious: No
  Sender: FDA-Public Use
  Company Number: US-ABBOTT-11P-163-0883874-00

PATIENT
  Age: 54 Year
  Sex: Male

DRUGS (5)
  1. ASPIRIN [Concomitant]
     Indication: PROPHYLAXIS
  2. LANSOPRAZOLE [Concomitant]
     Indication: GASTROOESOPHAGEAL REFLUX DISEASE
  3. MV [Concomitant]
     Indication: PRODUCT USED FOR UNKNOWN INDICATION
  4. HUMIRA [Suspect]
     Indication: PSORIASIS
     Dates: start: 20111025
  5. TRIBENZOR [Concomitant]
     Indication: HYPERTENSION

REACTIONS (1)
  - INJECTION SITE PAIN [None]
